FAERS Safety Report 10784461 (Version 1)
Quarter: 2015Q1

REPORT INFORMATION
  Report Type: Spontaneous
  Country: US (occurrence: None)
  Receive Date: 20150209
  Receipt Date: 20150209
  Transmission Date: 20150721
  Serious: Yes (Life-Threatening)
  Sender: FDA-Public Use
  Company Number: None

PATIENT
  Age: 32 Year
  Sex: Male

DRUGS (1)
  1. DULOXETINE 60 MG [Suspect]
     Active Substance: DULOXETINE
     Dosage: 1 PILL TAKEN BY MOUTH
     Route: 048

REACTIONS (2)
  - Sexual dysfunction [None]
  - Depression [None]

NARRATIVE: CASE EVENT DATE: 20150207
